FAERS Safety Report 8482237-8 (Version None)
Quarter: 2012Q3

REPORT INFORMATION
  Report Type: 
  Country: None (occurrence: None)
  Receive Date: 20120702
  Receipt Date: 20120620
  Transmission Date: 20120928
  Serious: Yes (Other)
  Sender: FDA-Public Use
  Company Number: JP-PFIZER INC-2012152257

PATIENT
  Age: 79 Year
  Sex: Male

DRUGS (2)
  1. CISPLATIN [Suspect]
     Indication: SMALL CELL CARCINOMA
     Dosage: 75 MG/M2, UNK
  2. ETOPOSIDE [Concomitant]
     Indication: SMALL CELL CARCINOMA

REACTIONS (1)
  - RENAL SALT-WASTING SYNDROME [None]
